FAERS Safety Report 6069101-9 (Version None)
Quarter: 2009Q1

REPORT INFORMATION
  Report Type: 
  Country: None (occurrence: None)
  Receive Date: 20090203
  Receipt Date: 20090126
  Transmission Date: 20090719
  Serious: Yes (Other)
  Sender: FDA-Public Use
  Company Number: GXKR2009HU01151

PATIENT
  Sex: Male
  Weight: 1.2 kg

DRUGS (12)
  1. AZATHIOPRINE [Suspect]
     Dosage: UNK, TRANSPLACENTAL
     Route: 064
  2. METHYLPREDNISOLONE 4MG TAB [Suspect]
     Dosage: UNK, TRANSPLACENTAL 32-64 MG/ DAY, TRANSPLACENTAL
     Route: 064
  3. METHYLDOPA [Concomitant]
  4. FUROSEMIDE (FUROSEMIDE) [Concomitant]
  5. CLOPAMIDE (CLOPAMIDE) [Concomitant]
  6. NIFEDIPINE [Concomitant]
  7. MAGNESIUM SULFATE [Concomitant]
  8. NADROPARIN (NADROPARIN) [Concomitant]
  9. ERYTHROMYCIN [Concomitant]
  10. AMOXICILLIN [Concomitant]
  11. CLAVULANIC ACID (CLAVULANIC ACID) [Concomitant]
  12. RANITIDINE [Concomitant]

REACTIONS (5)
  - CAESAREAN SECTION [None]
  - FOETAL GROWTH RETARDATION [None]
  - MATERNAL DRUGS AFFECTING FOETUS [None]
  - PLACENTAL DISORDER [None]
  - PREMATURE BABY [None]
